FAERS Safety Report 9505333 (Version 1)
Quarter: 2013Q1

REPORT INFORMATION
  Report Type: Spontaneous
  Country: US (occurrence: None)
  Receive Date: 20130220
  Receipt Date: 20130220
  Transmission Date: 20140127
  Serious: No
  Sender: FDA-Public Use
  Company Number: 1000040484

PATIENT
  Sex: 0

DRUGS (1)
  1. VIIBRYD [Suspect]
     Dosage: (20 MG, 1 IN 1 D)
     Route: 048

REACTIONS (1)
  - Abnormal dreams [None]
